FAERS Safety Report 8401329-2 (Version None)
Quarter: 2012Q2

REPORT INFORMATION
  Report Type: 
  Country: None (occurrence: None)
  Receive Date: 20120530
  Receipt Date: 20120530
  Transmission Date: 20120825
  Serious: Yes (Other)
  Sender: FDA-Public Use
  Company Number: None

PATIENT
  Sex: Male
  Weight: 90.7194 kg

DRUGS (1)
  1. BYDUREON [Suspect]
     Dosage: 2MG WEEKLY SQ
     Route: 058
     Dates: start: 20120225

REACTIONS (1)
  - SUBCUTANEOUS NODULE [None]
